FAERS Safety Report 26084621 (Version 3)
Quarter: 2025Q4

REPORT INFORMATION
  Report Type: Spontaneous
  Country: US (occurrence: US)
  Receive Date: 20251124
  Receipt Date: 20251214
  Transmission Date: 20260118
  Serious: No
  Sender: JOHNSON AND JOHNSON
  Company Number: US-JNJFOC-20251150321

PATIENT
  Age: 25 Year
  Sex: Female

DRUGS (2)
  1. USTEKINUMAB [Suspect]
     Active Substance: USTEKINUMAB
     Indication: Psoriasis
     Route: 058
  2. USTEKINUMAB [Suspect]
     Active Substance: USTEKINUMAB

REACTIONS (2)
  - Product dose omission issue [Unknown]
  - Device defective [Unknown]

NARRATIVE: CASE EVENT DATE: 20251107
